FAERS Safety Report 23694633 (Version 2)
Quarter: 2024Q2

REPORT INFORMATION
  Report Type: Report from Study
  Country: US (occurrence: US)
  Receive Date: 20240402
  Receipt Date: 20240414
  Transmission Date: 20240716
  Serious: Yes (Hospitalization)
  Sender: FDA-Public Use
  Company Number: US-ABBVIE-5694613

PATIENT
  Sex: Female

DRUGS (4)
  1. SKYRIZI [Suspect]
     Active Substance: RISANKIZUMAB-RZAA
     Indication: Psoriasis
     Route: 058
     Dates: start: 20231102
  2. SKYRIZI [Suspect]
     Active Substance: RISANKIZUMAB-RZAA
     Route: 058
     Dates: start: 20231101, end: 202311
  3. XANAX [Concomitant]
     Active Substance: ALPRAZOLAM
     Indication: Product used for unknown indication
  4. XANAX [Concomitant]
     Active Substance: ALPRAZOLAM
     Indication: Product used for unknown indication
     Dosage: DOSE REDUCED

REACTIONS (10)
  - Asthma [Recovering/Resolving]
  - Asthma [Recovered/Resolved]
  - Psoriasis [Recovering/Resolving]
  - Dislocation of vertebra [Recovering/Resolving]
  - Therapeutic response shortened [Recovering/Resolving]
  - Sleep apnoea syndrome [Recovering/Resolving]
  - Anxiety [Recovering/Resolving]
  - Back pain [Recovering/Resolving]
  - Gait disturbance [Recovering/Resolving]
  - Mobility decreased [Recovering/Resolving]
